FAERS Safety Report 12388861 (Version 1)
Quarter: 2016Q2

REPORT INFORMATION
  Report Type: Report from Study
  Country: IT (occurrence: IT)
  Receive Date: 20160520
  Receipt Date: 20160520
  Transmission Date: 20160815
  Serious: Yes (Other)
  Sender: FDA-Public Use
  Company Number: IT-BAXTER-2016BAX025951

PATIENT

DRUGS (3)
  1. ENDOXAN BAXTER [Suspect]
     Active Substance: CYCLOPHOSPHAMIDE
     Indication: HODGKIN^S DISEASE
     Route: 065
  2. TIOTEPA [Suspect]
     Active Substance: THIOTEPA
     Indication: HODGKIN^S DISEASE
     Route: 065
  3. FLUDARABINA [Suspect]
     Active Substance: FLUDARABINE PHOSPHATE
     Indication: HODGKIN^S DISEASE
     Route: 065

REACTIONS (6)
  - Eczema [Unknown]
  - Pharyngitis [Unknown]
  - Urinary tract infection [Unknown]
  - Restrictive allograft syndrome [Unknown]
  - Mucosal inflammation [Unknown]
  - Stem cell transplant [None]
